FAERS Safety Report 5140470-7 (Version None)
Quarter: 2006Q4

REPORT INFORMATION
  Report Type: 
  Country: None (occurrence: None)
  Receive Date: 20061025
  Receipt Date: 20061025
  Transmission Date: 20070319
  Serious: Yes (Other)
  Sender: FDA-Public Use
  Company Number: None

PATIENT
  Sex: Female

DRUGS (1)
  1. OXYBUTYNIN 5 MG WATSON [Suspect]
     Indication: URINARY INCONTINENCE
     Dosage: ONE TABLET TWICE DAILY PO
     Route: 048
     Dates: start: 20061004, end: 20061022

REACTIONS (2)
  - OEDEMA PERIPHERAL [None]
  - SWELLING FACE [None]
